FAERS Safety Report 10180531 (Version 2)
Quarter: 2014Q2

REPORT INFORMATION
  Report Type: Spontaneous
  Country: US (occurrence: US)
  Receive Date: 20140519
  Receipt Date: 20140519
  Transmission Date: 20141212
  Serious: No
  Sender: FDA-Public Use
  Company Number: US-AMGEN INC.-USASP2013083916

PATIENT
  Age: 89 Year
  Sex: Female

DRUGS (4)
  1. PROLIA [Suspect]
     Indication: OSTEOPOROSIS POSTMENOPAUSAL
     Dosage: 60 MG, UNK
     Route: 058
     Dates: start: 20130122, end: 20130122
  2. ASA [Concomitant]
     Dosage: 81 UNK, QD
     Route: 048
  3. DYAZIDE [Concomitant]
     Indication: HYPERTENSION
     Dosage: UNK UNK, QD
     Route: 048
  4. LEVOTHYROXINE [Concomitant]
     Indication: HYPOTHYROIDISM
     Dosage: 58 UNK, UNK
     Route: 048

REACTIONS (2)
  - Drug intolerance [Unknown]
  - Pain [Recovering/Resolving]
